FAERS Safety Report 6966212-8 (Version None)
Quarter: 2010Q3

REPORT INFORMATION
  Report Type: 
  Country: None (occurrence: None)
  Receive Date: 20100903
  Receipt Date: 20100827
  Transmission Date: 20110219
  Serious: Yes (Other)
  Sender: FDA-Public Use
  Company Number: US-ABBOTT-10P-163-0657066-00

PATIENT
  Sex: Male
  Weight: 90.8 kg

DRUGS (12)
  1. VICODIN [Interacting]
     Indication: NEUROPATHY PERIPHERAL
     Dosage: 10/650 MG
     Route: 048
  2. NEURONTIN [Interacting]
     Indication: NEUROPATHY PERIPHERAL
     Route: 048
     Dates: start: 20011101
  3. METFORMIN HCL [Suspect]
     Indication: DIABETES MELLITUS
     Dates: start: 20011101, end: 20040101
  4. METFORMIN HCL [Suspect]
     Dates: end: 20040101
  5. GABAPENTIN [Suspect]
     Indication: NEUROPATHY PERIPHERAL
     Route: 048
     Dates: start: 20100101
  6. FENTANYL CITRATE [Suspect]
     Indication: NEUROPATHY PERIPHERAL
     Dosage: PATCH
     Route: 062
  7. KEFLEX [Suspect]
     Indication: SINUSITIS
     Route: 048
  8. LANTUS [Concomitant]
     Indication: DIABETES MELLITUS
     Dosage: TAKEN AT NIGHT
     Route: 050
  9. HUMALOG [Concomitant]
     Indication: DIABETES MELLITUS
     Dosage: AT NIGHT BASED ON BLOOD SUGAR LEVEL
     Route: 050
  10. FLUTICASONE PROPIONATE [Concomitant]
     Indication: PRODUCT USED FOR UNKNOWN INDICATION
  11. ACETYLSALICYLIC ACID [Concomitant]
     Indication: PRODUCT USED FOR UNKNOWN INDICATION
  12. NITROGLYCERIN [Concomitant]
     Indication: PRODUCT USED FOR UNKNOWN INDICATION

REACTIONS (11)
  - ABDOMINAL PAIN UPPER [None]
  - CONSTIPATION [None]
  - DRUG INEFFECTIVE [None]
  - DRUG INTERACTION [None]
  - DYSURIA [None]
  - FATIGUE [None]
  - HAND FRACTURE [None]
  - HYPERSOMNIA [None]
  - LIVER DISORDER [None]
  - MEMORY IMPAIRMENT [None]
  - MOOD ALTERED [None]
